FAERS Safety Report 8098468 (Version 5)
Quarter: 2013Q2

REPORT INFORMATION
  Report Type: Spontaneous
  Country: US (occurrence: None)
  Receive Date: 20110819
  Receipt Date: 20121218
  Transmission Date: 20140414
  Serious: Yes (Other)
  Sender: FDA-Public Use
  Company Number: PHEH2011US01155

PATIENT
  Sex: Female

DRUGS (2)
  1. ZOMETA (ZOLEDRONATE) SOLUTION FOR INJECTION [Suspect]
     Indication: METASTASES TO BONE
     Dates: end: 2009
  2. LOVENOX [Concomitant]

REACTIONS (1)
  - OSTEONECROSIS [None]
